FAERS Safety Report 4749815-0 (Version None)
Quarter: 2005Q3

REPORT INFORMATION
  Report Type: 
  Country: None (occurrence: None)
  Receive Date: 20050822
  Receipt Date: 20050816
  Transmission Date: 20060218
  Serious: Yes (Death)
  Sender: FDA-Public Use
  Company Number: US-JNJFOC-20050800052

PATIENT
  Sex: Female
  Weight: 75.3 kg

DRUGS (8)
  1. LEVAQUIN [Suspect]
     Indication: BLADDER OPERATION
     Route: 042
  2. PLASMANATE [Concomitant]
     Route: 042
  3. PLASMANATE [Concomitant]
     Route: 042
  4. PLASMANATE [Concomitant]
     Route: 042
  5. PLASMANATE [Concomitant]
     Route: 042
  6. PLASMANATE [Concomitant]
     Route: 042
  7. PLASMANATE [Concomitant]
     Route: 042
  8. VERSED [Concomitant]
     Route: 042

REACTIONS (1)
  - CORONARY ARTERY OCCLUSION [None]
